FAERS Safety Report 14211784 (Version 2)
Quarter: 2018Q1

REPORT INFORMATION
  Report Type: Spontaneous
  Country: US (occurrence: US)
  Receive Date: 20171121
  Receipt Date: 20180109
  Transmission Date: 20180508
  Serious: Yes (Hospitalization)
  Sender: FDA-Public Use
  Company Number: US-ACTELION-A-US2017-162733

PATIENT
  Age: 39 Year
  Sex: Female

DRUGS (3)
  1. VELETRI [Suspect]
     Active Substance: EPOPROSTENOL
     Indication: PULMONARY ARTERIAL HYPERTENSION
     Dosage: 8 NG/KG, PER MIN
     Route: 042
     Dates: start: 201710
  2. LETAIRIS [Concomitant]
     Active Substance: AMBRISENTAN
     Dosage: 10 MG, QD
     Dates: start: 201511
  3. VELETRI [Suspect]
     Active Substance: EPOPROSTENOL
     Dosage: 10 NG/KG, PER MIN
     Route: 042
     Dates: start: 20171228

REACTIONS (7)
  - Muscular weakness [Unknown]
  - Dyspnoea [Unknown]
  - Headache [Unknown]
  - Nausea [Unknown]
  - Insomnia [Unknown]
  - Vomiting [Unknown]
  - Fall [Unknown]

NARRATIVE: CASE EVENT DATE: 20171111
